FAERS Safety Report 23937863 (Version 1)
Quarter: 2024Q2

REPORT INFORMATION
  Report Type: Spontaneous
  Country: US (occurrence: US)
  Receive Date: 20240604
  Receipt Date: 20240604
  Transmission Date: 20240716
  Serious: No
  Sender: FDA-Public Use
  Company Number: US-Calliditas-2024CAL00857

PATIENT
  Age: 76 Year
  Sex: Male
  Weight: 84.3 kg

DRUGS (1)
  1. TARPEYO [Suspect]
     Active Substance: BUDESONIDE
     Indication: Haematuria
     Route: 048
     Dates: start: 20240424

REACTIONS (3)
  - Headache [Unknown]
  - Fatigue [Unknown]
  - Off label use [Unknown]
